FAERS Safety Report 24703754 (Version 1)
Quarter: 2024Q4

REPORT INFORMATION
  Report Type: Spontaneous
  Country: US (occurrence: US)
  Receive Date: 20241206
  Receipt Date: 20241206
  Transmission Date: 20250114
  Serious: No
  Sender: AUROBINDO
  Company Number: US-AUROBINDO-AUR-APL-2024-016966

PATIENT
  Age: 69 Year
  Sex: Female
  Weight: 49.4 kg

DRUGS (1)
  1. MIRTAZAPINE [Suspect]
     Active Substance: MIRTAZAPINE
     Indication: Product used for unknown indication
     Dosage: 1 DOSAGE FORM, AT BED TIME
     Route: 048
     Dates: start: 20240303

REACTIONS (8)
  - Asthenia [Recovered/Resolved]
  - Fatigue [Recovered/Resolved]
  - Faeces soft [Recovered/Resolved]
  - Faeces hard [Recovered/Resolved]
  - Diarrhoea [Recovered/Resolved]
  - Bowel movement irregularity [Recovered/Resolved]
  - Constipation [Recovered/Resolved]
  - Weight fluctuation [Recovered/Resolved]
